FAERS Safety Report 6153708-4 (Version None)
Quarter: 2009Q2

REPORT INFORMATION
  Report Type: 
  Country: None (occurrence: None)
  Receive Date: 20090410
  Receipt Date: 20090404
  Transmission Date: 20091009
  Serious: Yes (Other)
  Sender: FDA-Public Use
  Company Number: CHPA2009US08614

PATIENT
  Age: 15 Year
  Sex: Female
  Weight: 63.5 kg

DRUGS (1)
  1. EX-LAX REG STR CHOCOLATED LAX PCS SEN (NCH) (SENNA GLYCOSIDES (CA SALT [Suspect]
     Dosage: 720 MG QD ORAL
     Route: 048
     Dates: start: 20090401, end: 20090401

REACTIONS (3)
  - DIARRHOEA [None]
  - OVERDOSE [None]
  - WEIGHT DECREASED [None]
